FAERS Safety Report 20418729 (Version 1)
Quarter: 2022Q1

REPORT INFORMATION
  Report Type: Report from Study
  Country: US (occurrence: US)
  Receive Date: 20220202
  Receipt Date: 20220202
  Transmission Date: 20220423
  Serious: Yes (Death, Hospitalization)
  Sender: FDA-Public Use
  Company Number: US-EXELIXIS-CABO-22048323

PATIENT
  Age: 71 Year
  Sex: Male

DRUGS (2)
  1. CABOMETYX [Suspect]
     Active Substance: CABOZANTINIB S-MALATE
     Indication: Renal cancer
     Dosage: 40 MG, QD
     Route: 048
     Dates: start: 20200408
  2. CABOMETYX [Suspect]
     Active Substance: CABOZANTINIB S-MALATE
     Indication: Metastases to bone

REACTIONS (10)
  - Sepsis [Unknown]
  - General physical health deterioration [Unknown]
  - Pneumonia [Unknown]
  - Respiratory failure [Fatal]
  - Pulmonary embolism [Fatal]
  - Malignant neoplasm progression [Unknown]
  - Cardiomegaly [Unknown]
  - Hepatic steatosis [Unknown]
  - Gallbladder disorder [Unknown]
  - Spinal osteoarthritis [Unknown]

NARRATIVE: CASE EVENT DATE: 20220105
